FAERS Safety Report 10445636 (Version 2)
Quarter: 2014Q4

REPORT INFORMATION
  Report Type: Spontaneous
  Country: US (occurrence: US)
  Receive Date: 20140910
  Receipt Date: 20141031
  Transmission Date: 20150528
  Serious: Yes (Other)
  Sender: FDA-Public Use
  Company Number: US-TEVA-507993USA

PATIENT
  Age: 53 Year
  Sex: Female

DRUGS (1)
  1. PARAGARD T380A [Suspect]
     Active Substance: COPPER
     Indication: CONTRACEPTION
     Route: 015
     Dates: start: 20060512, end: 20140801

REACTIONS (6)
  - Pelvic pain [Recovering/Resolving]
  - Embedded device [Recovered/Resolved]
  - Pain [Recovering/Resolving]
  - Back pain [Recovering/Resolving]
  - Device dislocation [Recovered/Resolved]
  - Device breakage [Recovered/Resolved]

NARRATIVE: CASE EVENT DATE: 20140801
